FAERS Safety Report 13648581 (Version 3)
Quarter: 2017Q3

REPORT INFORMATION
  Report Type: Spontaneous
  Country: NZ (occurrence: NZ)
  Receive Date: 20170613
  Receipt Date: 20170814
  Transmission Date: 20171127
  Serious: Yes (Other)
  Sender: FDA-Public Use
  Company Number: NZ-PFIZER INC-2017256208

PATIENT
  Age: 49 Year
  Sex: Female
  Weight: 81.5 kg

DRUGS (1)
  1. CHAMPIX [Suspect]
     Active Substance: VARENICLINE TARTRATE
     Indication: SMOKING CESSATION THERAPY
     Dosage: UNK, 2X/DAY
     Route: 048
     Dates: start: 201702, end: 2017

REACTIONS (2)
  - Oedema peripheral [Recovering/Resolving]
  - Basedow^s disease [Recovering/Resolving]

NARRATIVE: CASE EVENT DATE: 20170515
